FAERS Safety Report 8257078-7 (Version None)
Quarter: 2012Q2

REPORT INFORMATION
  Report Type: 
  Country: None (occurrence: None)
  Receive Date: 20120403
  Receipt Date: 20120326
  Transmission Date: 20120825
  Serious: Yes (Life-Threatening, Hospitalization)
  Sender: FDA-Public Use
  Company Number: DE-GLAXOSMITHKLINE-D0074602A

PATIENT
  Sex: Male
  Weight: 84 kg

DRUGS (1)
  1. VOTRIENT [Suspect]
     Indication: SYNOVIAL SARCOMA METASTATIC
     Dosage: 200MG PER DAY
     Route: 048
     Dates: start: 20111214, end: 20120227

REACTIONS (10)
  - SLEEP DISORDER [None]
  - DISORIENTATION [None]
  - HYPERTRIGLYCERIDAEMIA [None]
  - LOSS OF CONSCIOUSNESS [None]
  - CARDIAC FAILURE [None]
  - TACHYCARDIA [None]
  - INITIAL INSOMNIA [None]
  - MIDDLE INSOMNIA [None]
  - CONFUSIONAL STATE [None]
  - HYPERTENSION [None]
